FAERS Safety Report 7946971-8 (Version None)
Quarter: 2011Q4

REPORT INFORMATION
  Report Type: 
  Country: None (occurrence: None)
  Receive Date: 20111129
  Receipt Date: 20111116
  Transmission Date: 20120403
  Serious: Yes (Other)
  Sender: FDA-Public Use
  Company Number: JP-ASTRAZENECA-2011SE62847

PATIENT
  Age: 36 Year
  Sex: Female

DRUGS (5)
  1. AMOXAPINE [Concomitant]
  2. LITHIUM CARBONATE [Concomitant]
  3. STEROID ANTIBACTERIALS [Concomitant]
  4. SEROQUEL [Suspect]
     Indication: INSOMNIA
     Route: 048
     Dates: start: 20111011
  5. SILECE [Concomitant]

REACTIONS (3)
  - OFF LABEL USE [None]
  - ALTERED STATE OF CONSCIOUSNESS [None]
  - CONFUSIONAL STATE [None]
